FAERS Safety Report 8737179 (Version 3)
Quarter: 2016Q2

REPORT INFORMATION
  Report Type: Spontaneous
  Country: US (occurrence: US)
  Receive Date: 20120822
  Receipt Date: 20160405
  Transmission Date: 20160815
  Serious: No
  Sender: FDA-Public Use
  Company Number: US-ASTRAZENECA-2011SE50819

PATIENT
  Age: 62 Year
  Sex: Female

DRUGS (8)
  1. LOSARTAN. [Concomitant]
     Active Substance: LOSARTAN
     Indication: BLOOD PRESSURE MEASUREMENT
     Route: 048
  2. SYMBICORT [Suspect]
     Active Substance: BUDESONIDE\FORMOTEROL FUMARATE DIHYDRATE
     Indication: CHRONIC OBSTRUCTIVE PULMONARY DISEASE
     Dosage: 160 UG, TWO TIMES A DAY
     Route: 055
     Dates: start: 2008
  3. DALIRESP [Suspect]
     Active Substance: ROFLUMILAST
     Indication: CHRONIC OBSTRUCTIVE PULMONARY DISEASE
     Route: 048
     Dates: start: 201512, end: 20160210
  4. AMLODIPINE [Concomitant]
     Active Substance: AMLODIPINE BESYLATE
     Route: 048
  5. GABAPENTIN. [Concomitant]
     Active Substance: GABAPENTIN
     Indication: NEURALGIA
     Route: 048
  6. CHLORPHENIRAMINE. [Concomitant]
     Active Substance: CHLORPHENIRAMINE
     Indication: HYPERSENSITIVITY
     Route: 048
  7. SPIRIVA [Concomitant]
     Active Substance: TIOTROPIUM BROMIDE MONOHYDRATE
     Indication: CHRONIC OBSTRUCTIVE PULMONARY DISEASE
     Route: 055
  8. ALBUTEROL. [Concomitant]
     Active Substance: ALBUTEROL
     Indication: DYSPNOEA
     Dosage: 2 PUFFS EVERY 6 HOURS TID
     Route: 055

REACTIONS (8)
  - Activities of daily living impaired [Unknown]
  - Feeling abnormal [Unknown]
  - Dizziness [Unknown]
  - Drug intolerance [Unknown]
  - Drug dose omission [Unknown]
  - Dyspnoea [Unknown]
  - Adverse event [Unknown]
  - Nausea [Unknown]
